FAERS Safety Report 21298474 (Version 1)
Quarter: 2022Q3

REPORT INFORMATION
  Report Type: Spontaneous
  Country: US (occurrence: None)
  Receive Date: 20220903
  Receipt Date: 20220903
  Transmission Date: 20221027
  Serious: Yes (Other)
  Sender: FDA-Public Use
  Company Number: None

PATIENT
  Age: 65 Year
  Sex: Male
  Weight: 103.5 kg

DRUGS (3)
  1. EZETIMIBE [Suspect]
     Active Substance: EZETIMIBE
     Indication: Blood cholesterol increased
     Dosage: OTHER QUANTITY : 1 TABLET(S);?FREQUENCY : DAILY;?
     Dates: start: 20220901
  2. ATORVASTATIN [Suspect]
     Active Substance: ATORVASTATIN
  3. VITAMINS [Concomitant]
     Active Substance: VITAMINS

REACTIONS (8)
  - Nausea [None]
  - Swelling [None]
  - Pain in extremity [None]
  - Joint swelling [None]
  - Abdominal distension [None]
  - Arthralgia [None]
  - Dysarthria [None]
  - Nasal congestion [None]

NARRATIVE: CASE EVENT DATE: 20220902
